FAERS Safety Report 6447987-3 (Version None)
Quarter: 2009Q4

REPORT INFORMATION
  Report Type: 
  Country: None (occurrence: None)
  Receive Date: 20091120
  Receipt Date: 20091109
  Transmission Date: 20100525
  Serious: Yes (Hospitalization, Disabling)
  Sender: FDA-Public Use
  Company Number: FI-JNJFOC-20091004106

PATIENT
  Sex: Male

DRUGS (9)
  1. REMICADE [Suspect]
     Indication: CROHN'S DISEASE
     Route: 042
  2. REMICADE [Suspect]
     Indication: COLITIS ULCERATIVE
     Route: 042
  3. CIPROFLOXACIN [Suspect]
     Indication: INFECTION
     Route: 042
  4. METRONIDAZOLE [Suspect]
     Indication: INFECTION
     Route: 042
  5. PREDNISONE [Suspect]
     Indication: COLITIS
     Route: 048
  6. LEPONEX [Concomitant]
     Indication: SCHIZOPHRENIA
     Route: 048
  7. MEROPENEM [Concomitant]
     Indication: INFECTION
     Route: 042
  8. AZAMUN [Concomitant]
     Indication: COLITIS
     Route: 048
  9. SOMAC [Concomitant]
     Indication: PROPHYLAXIS
     Route: 048

REACTIONS (2)
  - NERVE INJURY [None]
  - VISUAL IMPAIRMENT [None]
